FAERS Safety Report 7780450-6 (Version None)
Quarter: 2011Q3

REPORT INFORMATION
  Report Type: 
  Country: None (occurrence: None)
  Receive Date: 20110927
  Receipt Date: 20110922
  Transmission Date: 20111222
  Serious: No
  Sender: FDA-Public Use
  Company Number: US-SANOFI-AVENTIS-2011SA054578

PATIENT
  Age: 72 Year
  Sex: Female
  Weight: 53.63 kg

DRUGS (6)
  1. FUROSEMIDE [Concomitant]
     Dates: start: 20110406
  2. DIGOXIN [Concomitant]
     Indication: ATRIAL FIBRILLATION
  3. MULTAQ [Suspect]
     Route: 048
     Dates: start: 20110630, end: 20110728
  4. PREDNISONE [Concomitant]
     Indication: RENAL DISORDER
     Dates: start: 20090901
  5. PROGRAF [Suspect]
     Indication: PROPHYLAXIS AGAINST TRANSPLANT REJECTION
     Route: 065
     Dates: start: 20090901
  6. MYCOPHENOLATE MOFETIL (CELLCEPT) [Concomitant]
     Indication: PROPHYLAXIS AGAINST TRANSPLANT REJECTION
     Dates: start: 20090901

REACTIONS (2)
  - GLOMERULAR FILTRATION RATE DECREASED [None]
  - BLOOD CREATININE INCREASED [None]
